FAERS Safety Report 11726504 (Version 1)
Quarter: 2015Q4

REPORT INFORMATION
  Report Type: Spontaneous
  Country: US (occurrence: US)
  Receive Date: 20151110
  Receipt Date: 20151110
  Transmission Date: 20160304
  Serious: No
  Sender: FDA-Public Use
  Company Number: US-ELI_LILLY_AND_COMPANY-US201111002613

PATIENT
  Age: 68 Year
  Sex: Female

DRUGS (5)
  1. ALLEGRA [Concomitant]
     Active Substance: FEXOFENADINE HYDROCHLORIDE
  2. MEPRON                             /00049601/ [Concomitant]
     Indication: LYME DISEASE
     Dosage: 750 MG, QD
  3. FORTEO [Suspect]
     Active Substance: TERIPARATIDE
     Dosage: 20 UG, QD
  4. ZITHROMAX [Concomitant]
     Active Substance: AZITHROMYCIN DIHYDRATE
     Indication: LYME DISEASE
     Dosage: 500 MG, QD
  5. FORTEO [Suspect]
     Active Substance: TERIPARATIDE
     Indication: OSTEOPOROSIS
     Dosage: 20 UG, QD
     Dates: start: 20111027

REACTIONS (14)
  - Erythema [Recovering/Resolving]
  - Flushing [Recovering/Resolving]
  - Hot flush [Unknown]
  - Adverse drug reaction [Unknown]
  - Middle insomnia [Unknown]
  - Dizziness [Unknown]
  - Rash [Unknown]
  - Pruritus [Recovering/Resolving]
  - Burning sensation [Unknown]
  - Dry throat [Unknown]
  - Escherichia bacteraemia [Unknown]
  - Peripheral swelling [Recovering/Resolving]
  - Tinnitus [Recovering/Resolving]
  - Headache [Unknown]

NARRATIVE: CASE EVENT DATE: 20111027
